FAERS Safety Report 13863484 (Version 3)
Quarter: 2017Q4

REPORT INFORMATION
  Report Type: Spontaneous
  Country: US (occurrence: US)
  Receive Date: 20170814
  Receipt Date: 20171102
  Transmission Date: 20180320
  Serious: No
  Sender: FDA-Public Use
  Company Number: US-PFIZER INC-2017346869

PATIENT

DRUGS (1)
  1. CEREBYX [Suspect]
     Active Substance: FOSPHENYTOIN SODIUM
     Dosage: 200 MG, 2X/DAY (RECEIVING 200MG IV IN 50ML NS Q12H.)
     Route: 042

REACTIONS (3)
  - Product preparation error [Unknown]
  - Fluid overload [Unknown]
  - Accidental underdose [Unknown]
